FAERS Safety Report 13991918 (Version 1)
Quarter: 2017Q3

REPORT INFORMATION
  Report Type: Spontaneous
  Country: US (occurrence: US)
  Receive Date: 20170920
  Receipt Date: 20170920
  Transmission Date: 20171128
  Serious: No
  Sender: FDA-Public Use
  Company Number: US-JNJFOC-20170817631

PATIENT
  Sex: Male

DRUGS (18)
  1. STELARA [Suspect]
     Active Substance: USTEKINUMAB
     Indication: PSORIASIS
     Dosage: AT 0. 4  AND 12 WEEKS
     Route: 058
  2. DESOXIMETASONE. [Concomitant]
     Active Substance: DESOXIMETASONE
     Route: 061
  3. ATENOLOL. [Concomitant]
     Active Substance: ATENOLOL
     Route: 048
  4. SERTRALINE [Concomitant]
     Active Substance: SERTRALINE HYDROCHLORIDE
     Route: 048
  5. DOVONEX [Concomitant]
     Active Substance: CALCIPOTRIENE
     Route: 061
  6. HYDROXYZINE HYDROCHLORIDE. [Concomitant]
     Active Substance: HYDROXYZINE HYDROCHLORIDE
     Route: 048
  7. RANITIDINE. [Concomitant]
     Active Substance: RANITIDINE
     Route: 048
  8. LAMOTRIGINE. [Concomitant]
     Active Substance: LAMOTRIGINE
     Route: 048
  9. LEVOTHYROXINE. [Concomitant]
     Active Substance: LEVOTHYROXINE
     Route: 048
  10. QUETIAPINE. [Concomitant]
     Active Substance: QUETIAPINE
     Route: 048
  11. TRAZODONE [Concomitant]
     Active Substance: TRAZODONE HYDROCHLORIDE
     Route: 048
  12. DOXEPIN [Concomitant]
     Active Substance: DOXEPIN
     Route: 048
  13. LISINOPRIL. [Concomitant]
     Active Substance: LISINOPRIL
     Route: 048
  14. LOVASTATIN. [Concomitant]
     Active Substance: LOVASTATIN
     Route: 048
  15. FINASTERIDE. [Concomitant]
     Active Substance: FINASTERIDE
     Route: 048
  16. OXYCODONE [Concomitant]
     Active Substance: OXYCODONE
     Route: 048
  17. ASPIRIN. [Concomitant]
     Active Substance: ASPIRIN
     Route: 048
  18. COSENTYX [Concomitant]
     Active Substance: SECUKINUMAB
     Dosage: 150MG/ML
     Route: 058

REACTIONS (2)
  - Fatigue [Unknown]
  - Weight decreased [Unknown]
